FAERS Safety Report 7430364-6 (Version None)
Quarter: 2011Q2

REPORT INFORMATION
  Report Type: 
  Country: None (occurrence: None)
  Receive Date: 20110421
  Receipt Date: 20100614
  Transmission Date: 20111010
  Serious: No
  Sender: FDA-Public Use
  Company Number: US-ASTRAZENECA-2010SE27717

PATIENT
  Sex: Female
  Weight: 95.3 kg

DRUGS (1)
  1. METOPROLOL SUCCINATE [Suspect]
     Indication: HEART RATE IRREGULAR
     Route: 048

REACTIONS (2)
  - MALAISE [None]
  - SKIN DISCOLOURATION [None]
